FAERS Safety Report 5338751-7 (Version None)
Quarter: 2007Q2

REPORT INFORMATION
  Report Type: 
  Country: None (occurrence: None)
  Receive Date: 20070322
  Receipt Date: 20060323
  Transmission Date: 20071010
  Serious: Yes (Other)
  Sender: FDA-Public Use
  Company Number: 200610625BCC

PATIENT
  Age: 63 Year
  Sex: Male
  Weight: 90.7194 kg

DRUGS (11)
  1. ALEVE (CAPLET) [Suspect]
     Indication: ARTHRITIS
     Dosage: 660 MG, TOTAL DAILY, ORAL
     Route: 048
     Dates: start: 20060118, end: 20060207
  2. ALCOHOL [Suspect]
  3. ASPIRIN [Suspect]
     Dosage: ORAL
     Route: 048
  4. DIOVAN [Concomitant]
  5. NEXIUM [Concomitant]
  6. COQ10 [Concomitant]
  7. MAGNESIUM OXIDE [Concomitant]
  8. CALCIUM CITRATE [Concomitant]
  9. FISH OIL [Concomitant]
  10. HYTRIN [Concomitant]
  11. LIPITOR [Concomitant]

REACTIONS (1)
  - BLOOD URINE PRESENT [None]
